FAERS Safety Report 18332168 (Version 2)
Quarter: 2020Q4

REPORT INFORMATION
  Report Type: Spontaneous
  Country: US (occurrence: US)
  Receive Date: 20200930
  Receipt Date: 20201001
  Transmission Date: 20210113
  Serious: Yes (Hospitalization)
  Sender: FDA-Public Use
  Company Number: US-CELGENEUS-USA-20200907928

PATIENT
  Sex: Female

DRUGS (3)
  1. REVLIMID [Suspect]
     Active Substance: LENALIDOMIDE
     Dosage: 15 MILLIGRAM
     Route: 048
     Dates: start: 201701
  2. REVLIMID [Suspect]
     Active Substance: LENALIDOMIDE
     Indication: PLASMA CELL MYELOMA
     Dosage: 25 MILLIGRAM
     Route: 048
     Dates: start: 201701
  3. REVLIMID [Suspect]
     Active Substance: LENALIDOMIDE
     Dosage: 2.5 MILLIGRAM
     Route: 048
     Dates: start: 201802

REACTIONS (4)
  - Headache [Not Recovered/Not Resolved]
  - Anaemia [Not Recovered/Not Resolved]
  - Cardiac disorder [Unknown]
  - Dizziness [Not Recovered/Not Resolved]
